FAERS Safety Report 6657034-6 (Version None)
Quarter: 2010Q1

REPORT INFORMATION
  Report Type: 
  Country: None (occurrence: None)
  Receive Date: 20100329
  Receipt Date: 20100329
  Transmission Date: 20100710
  Serious: Yes (Other)
  Sender: FDA-Public Use
  Company Number: None

PATIENT
  Sex: Female

DRUGS (2)
  1. TOPIRAMATE [Suspect]
     Indication: EPILEPSY
     Dosage: 100MG
     Dates: start: 20060101, end: 20080101
  2. TOPIRAMATE [Suspect]
     Indication: MIGRAINE
     Dosage: 100MG
     Dates: start: 20060101, end: 20080101

REACTIONS (2)
  - CONVULSION [None]
  - HEADACHE [None]
